FAERS Safety Report 16656766 (Version 1)
Quarter: 2019Q3

REPORT INFORMATION
  Report Type: Spontaneous
  Country: US (occurrence: US)
  Receive Date: 20190801
  Receipt Date: 20190801
  Transmission Date: 20191004
  Serious: No
  Sender: FDA-Public Use
  Company Number: US-PFIZER INC-2019327475

PATIENT
  Age: 31 Year

DRUGS (2)
  1. LYRICA [Suspect]
     Active Substance: PREGABALIN
     Indication: PLANTAR FASCIAL FIBROMATOSIS
     Dosage: 50 MG, 1X/DAY
  2. LYRICA [Suspect]
     Active Substance: PREGABALIN
     Indication: LIPOMA

REACTIONS (3)
  - Product use in unapproved indication [Unknown]
  - Pain in extremity [Unknown]
  - Off label use [Unknown]
